FAERS Safety Report 10420883 (Version 1)
Quarter: 2014Q3

REPORT INFORMATION
  Report Type: Spontaneous
  Country: GB (occurrence: None)
  Receive Date: 20140818
  Receipt Date: 20140818
  Transmission Date: 20150326
  Serious: Yes (Other)
  Sender: FDA-Public Use
  Company Number: GAM-260-14-GB

PATIENT
  Age: 50 Year
  Sex: Female

DRUGS (14)
  1. IBUPROFEN. [Concomitant]
     Active Substance: IBUPROFEN
  2. OMEPRAZOLE. [Concomitant]
     Active Substance: OMEPRAZOLE
  3. CALCIUM CARBONATE. [Concomitant]
     Active Substance: CALCIUM CARBONATE
  4. AMOXICILLIN TRIHYDRATE [Concomitant]
     Active Substance: AMOXICILLIN
  5. POTASSIUM CLAVULANATE [Concomitant]
     Active Substance: CLAVULANATE POTASSIUM
  6. BECLOMETASONE [Concomitant]
     Active Substance: BECLOMETHASONE DIPROPIONATE
  7. OCTAGAM IMMUNE GLOBULIN (HUMAN) [Suspect]
     Active Substance: HUMAN IMMUNOGLOBULIN G
     Indication: IMMUNODEFICIENCY COMMON VARIABLE
     Route: 042
     Dates: start: 20140514, end: 20140528
  8. OCTAGAM IMMUNE GLOBULIN (HUMAN) [Suspect]
     Active Substance: HUMAN IMMUNOGLOBULIN G
     Indication: IMMUNODEFICIENCY COMMON VARIABLE
     Route: 042
     Dates: start: 20140514, end: 20140528
  9. MULTIVITAMIN [Concomitant]
     Active Substance: VITAMINS
  10. FLUCONAZOLE. [Concomitant]
     Active Substance: FLUCONAZOLE
  11. PARACETAMOL [Concomitant]
     Active Substance: ACETAMINOPHEN
  12. SERAPEPTASE [Concomitant]
  13. ISOFLAVINS [Concomitant]
  14. SODIUM ALGINATE AND SODIUM BICARBONATE [Concomitant]

REACTIONS (12)
  - Hypersensitivity [None]
  - Feeling abnormal [None]
  - Hyperhidrosis [None]
  - Mental impairment [None]
  - Malaise [None]
  - Pruritus [None]
  - Erythema [None]
  - Feeling hot [None]
  - Chest pain [None]
  - Chest discomfort [None]
  - Burning sensation [None]
  - Hypertension [None]

NARRATIVE: CASE EVENT DATE: 20140514
